FAERS Safety Report 19535360 (Version 1)
Quarter: 2021Q3

REPORT INFORMATION
  Report Type: Other
  Country: CA (occurrence: CA)
  Receive Date: 20210713
  Receipt Date: 20210713
  Transmission Date: 20211014
  Serious: Yes (Hospitalization, Other)
  Sender: FDA-Public Use
  Company Number: CA-PFIZER INC-2021821209

PATIENT
  Age: 41 Year
  Sex: Female

DRUGS (8)
  1. DOCETAXEL. [Concomitant]
     Active Substance: DOCETAXEL
     Dosage: UNK
     Route: 065
  2. LIPOSOMAL DOXORUBICIN HYDROCHLORIDE [Concomitant]
     Active Substance: DOXORUBICIN HYDROCHLORIDE
     Dosage: UNK
  3. PACLITAXEL. [Concomitant]
     Active Substance: PACLITAXEL
     Dosage: UNK
  4. RUCAPARIB [Concomitant]
     Active Substance: RUCAPARIB
     Dosage: UNK
  5. GEMCITABINE. [Concomitant]
     Active Substance: GEMCITABINE
     Dosage: UNK
  6. CISPLATIN. [Concomitant]
     Active Substance: CISPLATIN
     Dosage: UNK
  7. BEVACIZUMAB. [Suspect]
     Active Substance: BEVACIZUMAB
     Indication: OVARIAN EPITHELIAL CANCER
     Dosage: UNK
     Route: 065
  8. CARBOPLATIN. [Concomitant]
     Active Substance: CARBOPLATIN
     Dosage: UNK

REACTIONS (19)
  - Electrocardiogram T wave abnormal [Recovered/Resolved]
  - Orthopnoea [Recovered/Resolved]
  - Pericardial effusion [Recovered/Resolved]
  - Vena cava thrombosis [Recovered/Resolved]
  - Cardiac tamponade [Recovered/Resolved]
  - Metastases to liver [Recovered/Resolved]
  - Pleural effusion [Recovered/Resolved]
  - Renal vein thrombosis [Recovered/Resolved]
  - Bowel movement irregularity [Recovered/Resolved]
  - Hypotension [Recovered/Resolved]
  - Pulmonary embolism [Recovered/Resolved]
  - Electrocardiogram QRS complex abnormal [Recovered/Resolved]
  - Lymphadenopathy [Recovered/Resolved]
  - Abdominal distension [Recovered/Resolved]
  - Asthenia [Recovered/Resolved]
  - Portal vein thrombosis [Recovered/Resolved]
  - Cardiomegaly [Recovered/Resolved]
  - Retroperitoneal mass [Recovered/Resolved]
  - Tachycardia [Recovered/Resolved]
